FAERS Safety Report 9459530 (Version 1)
Quarter: 2013Q3

REPORT INFORMATION
  Report Type: Spontaneous
  Country: US (occurrence: US)
  Receive Date: 20130815
  Receipt Date: 20130815
  Transmission Date: 20140515
  Serious: No
  Sender: FDA-Public Use
  Company Number: US-PFIZER INC-2013234690

PATIENT
  Sex: Female

DRUGS (2)
  1. PROTONIX [Suspect]
     Dosage: UNK
  2. LOSARTAN [Interacting]
     Indication: HYPERTENSION
     Dosage: UNK

REACTIONS (2)
  - Drug interaction [Unknown]
  - Dizziness [Unknown]
